FAERS Safety Report 5759151-1 (Version None)
Quarter: 2008Q2

REPORT INFORMATION
  Report Type: 
  Country: None (occurrence: None)
  Receive Date: 20080604
  Receipt Date: 20080508
  Transmission Date: 20081010
  Serious: No
  Sender: FDA-Public Use
  Company Number: US-BOEHRINGER INGELHEIM GMBH, GERMANY-2007-BP-24834BP

PATIENT
  Sex: Female

DRUGS (25)
  1. SPIRIVA [Suspect]
     Indication: CHRONIC OBSTRUCTIVE PULMONARY DISEASE
     Route: 055
     Dates: start: 20040101
  2. SPIRIVA [Suspect]
     Indication: EMPHYSEMA
  3. ADVAIR DISKUS 100/50 [Concomitant]
     Indication: CHRONIC OBSTRUCTIVE PULMONARY DISEASE
  4. QVAR 40 [Concomitant]
     Indication: CHRONIC OBSTRUCTIVE PULMONARY DISEASE
  5. CARDIZEM [Concomitant]
     Indication: HYPERTENSION
  6. BUSPAR [Concomitant]
     Indication: ANXIETY
  7. ZOCOR [Concomitant]
     Indication: BLOOD CHOLESTEROL INCREASED
  8. LASIX [Concomitant]
     Indication: HYPERTENSION
  9. IMDUR [Concomitant]
     Indication: HYPERTENSION
  10. PREVACID [Concomitant]
     Indication: GASTROOESOPHAGEAL REFLUX DISEASE
  11. POTASSIUM CHLORIDE [Concomitant]
     Indication: ELECTROLYTE SUBSTITUTION THERAPY
  12. BENTYL [Concomitant]
  13. DAYPRO [Concomitant]
  14. FLONASE [Concomitant]
  15. REFRESH [Concomitant]
  16. ASTELIN [Concomitant]
  17. MULTI-VITAMIN [Concomitant]
  18. MYCELEX [Concomitant]
  19. PLAVIX [Concomitant]
  20. OXYGEN [Concomitant]
  21. MAXAIR [Concomitant]
  22. QVAR INHALER [Concomitant]
  23. CALTRATE [Concomitant]
  24. CENTRUM SILVER [Concomitant]
  25. EXTRA STRENGTH TYLENOL [Concomitant]

REACTIONS (3)
  - DYSURIA [None]
  - URINARY TRACT INFECTION [None]
  - URINE FLOW DECREASED [None]
